FAERS Safety Report 25434783 (Version 1)
Quarter: 2025Q2

REPORT INFORMATION
  Report Type: Spontaneous
  Country: PT (occurrence: PT)
  Receive Date: 20250613
  Receipt Date: 20250613
  Transmission Date: 20250716
  Serious: Yes (Hospitalization, Other)
  Sender: ROCHE
  Company Number: PT-ROCHE-10000304150

PATIENT
  Age: 68 Year
  Sex: Female

DRUGS (5)
  1. BEVACIZUMAB [Suspect]
     Active Substance: BEVACIZUMAB
     Indication: Hepatocellular carcinoma
     Route: 065
     Dates: start: 2021
  2. ATEZOLIZUMAB [Suspect]
     Active Substance: ATEZOLIZUMAB
     Indication: Hepatocellular carcinoma
     Route: 065
     Dates: start: 2021
  3. CIPROFLOXACIN [Concomitant]
     Active Substance: CIPROFLOXACIN
     Dates: start: 2023
  4. METRONIDAZOLE [Concomitant]
     Active Substance: METRONIDAZOLE
     Dates: start: 2023
  5. METHYLPREDNISOLONE [Concomitant]
     Active Substance: METHYLPREDNISOLONE
     Dates: start: 2023

REACTIONS (17)
  - Rash [Unknown]
  - Asthenia [Unknown]
  - Lipase increased [Unknown]
  - Amylase increased [Unknown]
  - Pancreatitis acute [Unknown]
  - Pain [Unknown]
  - Abdominal distension [Unknown]
  - Diarrhoea [Unknown]
  - Pyrexia [Unknown]
  - Gastrointestinal wall thickening [Unknown]
  - Lymphadenopathy [Unknown]
  - Proctitis [Unknown]
  - Colitis [Unknown]
  - Hyperamylasaemia [Unknown]
  - Pancreatitis [Unknown]
  - Hypertension [Unknown]
  - Hepatic cirrhosis [Unknown]

NARRATIVE: CASE EVENT DATE: 20210101
